FAERS Safety Report 6738567-0 (Version None)
Quarter: 2010Q2

REPORT INFORMATION
  Report Type: 
  Country: None (occurrence: None)
  Receive Date: 20100524
  Receipt Date: 20100514
  Transmission Date: 20101027
  Serious: Yes (Other)
  Sender: FDA-Public Use
  Company Number: BR-PFIZER INC-2010060872

PATIENT
  Age: 34 Year
  Sex: Female
  Weight: 56 kg

DRUGS (2)
  1. DEPO-PROVERA [Suspect]
     Indication: CONTRACEPTION
     Dosage: 150 MG, EVERY 3 MONTHS
     Route: 030
     Dates: start: 20080701
  2. DEPO-PROVERA [Suspect]
     Indication: MENSTRUAL DISCOMFORT

REACTIONS (6)
  - AMENORRHOEA [None]
  - DRUG DOSE OMISSION [None]
  - MENORRHAGIA [None]
  - MENSTRUAL DISORDER [None]
  - OLIGOMENORRHOEA [None]
  - WEIGHT INCREASED [None]
